FAERS Safety Report 4378505-1 (Version None)
Quarter: 2004Q2

REPORT INFORMATION
  Report Type: 
  Country: None (occurrence: None)
  Receive Date: 20040609
  Receipt Date: 20040524
  Transmission Date: 20050107
  Serious: Yes (Hospitalization)
  Sender: FDA-Public Use
  Company Number: USA040568241

PATIENT
  Age: 65 Year
  Sex: Female
  Weight: 91 kg

DRUGS (3)
  1. HUMULIN 70/30 [Suspect]
     Dosage: 32 U DAY
  2. METFORMIN HCL [Concomitant]
  3. ACTOS [Concomitant]

REACTIONS (2)
  - ABDOMINAL WALL ABSCESS [None]
  - PHARMACEUTICAL PRODUCT COMPLAINT [None]
